FAERS Safety Report 25864970 (Version 1)
Quarter: 2025Q3

REPORT INFORMATION
  Report Type: Spontaneous
  Country: TW (occurrence: TW)
  Receive Date: 20250930
  Receipt Date: 20250930
  Transmission Date: 20251020
  Serious: Yes (Death)
  Sender: NOVITIUM PHARMA
  Company Number: TW-NOVITIUMPHARMA-2025TWNVP02415

PATIENT
  Age: 35 Year
  Sex: Female

DRUGS (4)
  1. PREDNISONE [Suspect]
     Active Substance: PREDNISONE
     Indication: Plasmablastic lymphoma
  2. VINCRISTINE [Concomitant]
     Active Substance: VINCRISTINE
  3. CYCLOPHOSPHAMIDE [Concomitant]
     Active Substance: CYCLOPHOSPHAMIDE
  4. DOXORUBICIN [Concomitant]
     Active Substance: DOXORUBICIN

REACTIONS (1)
  - Drug ineffective [Fatal]
